FAERS Safety Report 6056926-9 (Version None)
Quarter: 2009Q1

REPORT INFORMATION
  Report Type: 
  Country: None (occurrence: None)
  Receive Date: 20090129
  Receipt Date: 20090126
  Transmission Date: 20090719
  Serious: Yes (Other)
  Sender: FDA-Public Use
  Company Number: NL-B.I. PHARMACEUTICALS,INC./RIDGEFIELD-2009-DE-00875GD

PATIENT

DRUGS (2)
  1. RANITIDINE [Suspect]
  2. OTHER DRUG [Suspect]

REACTIONS (1)
  - INTERSTITIAL LUNG DISEASE [None]
